FAERS Safety Report 21029809 (Version 1)
Quarter: 2022Q2

REPORT INFORMATION
  Report Type: Spontaneous
  Country: IT (occurrence: IT)
  Receive Date: 20220630
  Receipt Date: 20220630
  Transmission Date: 20220720
  Serious: Yes (Hospitalization)
  Sender: FDA-Public Use
  Company Number: IT-SUN PHARMACEUTICAL INDUSTRIES LTD-2022R1-342556

PATIENT
  Age: 85 Year
  Sex: Female

DRUGS (1)
  1. QUETIAPINE [Suspect]
     Active Substance: QUETIAPINE
     Indication: Product used for unknown indication
     Dosage: 300-600 MILLIGRAM PER DAY
     Route: 065

REACTIONS (3)
  - Incorrect dosage administered [Unknown]
  - Overdose [Unknown]
  - Myoclonus [Unknown]
